FAERS Safety Report 17228540 (Version 1)
Quarter: 2020Q1

REPORT INFORMATION
  Report Type: Spontaneous
  Country: US (occurrence: US)
  Receive Date: 20200102
  Receipt Date: 20200102
  Transmission Date: 20200409
  Serious: Yes (Hospitalization, Disabling)
  Sender: FDA-Public Use
  Company Number: None

PATIENT
  Age: 68 Year
  Sex: Female
  Weight: 71.55 kg

DRUGS (17)
  1. CLONAZEPAM. [Concomitant]
     Active Substance: CLONAZEPAM
  2. LEXAPRO [Concomitant]
     Active Substance: ESCITALOPRAM OXALATE
  3. CALCIUM [Concomitant]
     Active Substance: CALCIUM
  4. VITAMIN D3 [Concomitant]
     Active Substance: CHOLECALCIFEROL
  5. POTASSIUM [Concomitant]
     Active Substance: POTASSIUM
  6. NEURIVA [Concomitant]
  7. MITOMYCIN C [Suspect]
     Active Substance: MITOMYCIN
     Indication: BLADDER NEOPLASM
     Dosage: ?          QUANTITY:10 DROP(S);?
     Route: 067
     Dates: start: 20140505, end: 20140505
  8. OXYCODONE [Concomitant]
     Active Substance: OXYCODONE
  9. ENSURE [Concomitant]
     Active Substance: AMINO ACIDS\DEXTROSE\ELECTROLYTES NOS\SOYBEAN OIL\VITAMINS
  10. LEVOTHYROXINE. [Concomitant]
     Active Substance: LEVOTHYROXINE
  11. MOVANTIK [Concomitant]
     Active Substance: NALOXEGOL OXALATE
  12. GINKOBA [Concomitant]
     Active Substance: GINKGO
  13. PHENETERMINE [Concomitant]
  14. METHYLPREDNISOLONE. [Concomitant]
     Active Substance: METHYLPREDNISOLONE
  15. PRESERVISION [Concomitant]
     Active Substance: MINERALS\VITAMINS
  16. ZOLPIDEM [Concomitant]
     Active Substance: ZOLPIDEM TARTRATE
  17. VITAMIN B12 [Concomitant]
     Active Substance: CYANOCOBALAMIN

REACTIONS (12)
  - Post procedural complication [None]
  - Procedural pain [None]
  - Administration site extravasation [None]
  - Nerve injury [None]
  - Pain [None]
  - Toxicity to various agents [None]
  - Tissue injury [None]
  - Product use in unapproved indication [None]
  - Bladder perforation [None]
  - Iatrogenic injury [None]
  - Abdominal distension [None]
  - Drug dependence [None]

NARRATIVE: CASE EVENT DATE: 20140505
